FAERS Safety Report 11057912 (Version 2)
Quarter: 2015Q3

REPORT INFORMATION
  Report Type: Report from Study
  Country: AU (occurrence: AU)
  Receive Date: 20150423
  Receipt Date: 20150709
  Transmission Date: 20151125
  Serious: Yes (Hospitalization, Other)
  Sender: FDA-Public Use
  Company Number: AU-ALEXION-A201501343

PATIENT

DRUGS (2)
  1. SOLIRIS [Suspect]
     Active Substance: ECULIZUMAB
     Dosage: 900 MG, Q2W
     Route: 042
  2. SOLIRIS [Suspect]
     Active Substance: ECULIZUMAB
     Indication: PAROXYSMAL NOCTURNAL HAEMOGLOBINURIA
     Dosage: 600 MG, QW FOR 4 WEEKS
     Route: 042
     Dates: start: 20110406, end: 20110504

REACTIONS (2)
  - Haemoglobin abnormal [Recovered/Resolved]
  - Extravascular haemolysis [Recovered/Resolved]

NARRATIVE: CASE EVENT DATE: 20150318
